FAERS Safety Report 14641839 (Version 7)
Quarter: 2018Q2

REPORT INFORMATION
  Report Type: Report from Study
  Country: GB (occurrence: GB)
  Receive Date: 20180315
  Receipt Date: 20180619
  Transmission Date: 20180711
  Serious: Yes (Hospitalization)
  Sender: FDA-Public Use
  Company Number: GB-ROCHE-2086312

PATIENT
  Age: 73 Year
  Sex: Female
  Weight: 67 kg

DRUGS (7)
  1. MIRTAZAPINE. [Concomitant]
     Active Substance: MIRTAZAPINE
     Indication: ANXIETY
     Route: 048
     Dates: start: 20180406
  2. CALCI-D [Concomitant]
     Indication: OSTEOPOROSIS PROPHYLAXIS
     Route: 065
     Dates: start: 20170125
  3. COBIMETINIB. [Suspect]
     Active Substance: COBIMETINIB
     Indication: MALIGNANT MELANOMA
     Dosage: 26/FEB/2018,MOST RECENT DOSE OF COBIMETINIB, ON 03/MAR/2018, SHE RECEIVED MOST RECENT DOSE OF COBIME
     Route: 048
     Dates: start: 20180223
  4. VEMURAFENIB. [Suspect]
     Active Substance: VEMURAFENIB
     Indication: MALIGNANT MELANOMA
     Dosage: ON 26/FEB/2018, SHE RECEIVED MOST RECENT DOSE OF VEMURAFENIB, ON 03/MAR/2018, SHE RECEIVED MOST RECE
     Route: 048
     Dates: start: 20180223
  5. BLINDED ATEZOLIZUMAB [Suspect]
     Active Substance: ATEZOLIZUMAB
     Indication: MALIGNANT MELANOMA
     Dosage: MOST RECENT DOSE OF BLINDED ATEZOLIZUMAB WAS RECEIVED ON 20/APR/2018 PRIOR TO EVENT ONSET.
     Route: 042
     Dates: start: 20180322
  6. SIMVASTATIN. [Concomitant]
     Active Substance: SIMVASTATIN
     Indication: CARDIOVASCULAR EVENT PROPHYLAXIS
     Route: 065
     Dates: start: 20120202
  7. FLUCONAZOLE. [Concomitant]
     Active Substance: FLUCONAZOLE
     Indication: ORAL CANDIDIASIS
     Route: 048
     Dates: start: 20180406

REACTIONS (2)
  - Chorioretinopathy [Not Recovered/Not Resolved]
  - Influenza like illness [Recovered/Resolved]

NARRATIVE: CASE EVENT DATE: 20180227
